FAERS Safety Report 5131868-1 (Version None)
Quarter: 2006Q4

REPORT INFORMATION
  Report Type: 
  Country: None (occurrence: None)
  Receive Date: 20061016
  Receipt Date: 20060929
  Transmission Date: 20070319
  Serious: Yes (Other)
  Sender: FDA-Public Use
  Company Number: 2006001891

PATIENT
  Sex: Female

DRUGS (1)
  1. TARCEVA [Suspect]
     Indication: NEUROFIBROMATOSIS
     Dosage: ORAL
     Route: 048

REACTIONS (4)
  - BLINDNESS UNILATERAL [None]
  - OPTIC ATROPHY [None]
  - OPTIC NERVE INJURY [None]
  - SKIN DISORDER [None]
